FAERS Safety Report 16056303 (Version 1)
Quarter: 2019Q1

REPORT INFORMATION
  Report Type: Spontaneous
  Country: US (occurrence: US)
  Receive Date: 20190311
  Receipt Date: 20190311
  Transmission Date: 20190418
  Serious: No
  Sender: FDA-Public Use
  Company Number: US-GLENMARK PHARMACEUTICALS-2019GMK039393

PATIENT

DRUGS (2)
  1. FLUOCINONIDE CREAM USP, 0.1 % [Suspect]
     Active Substance: FLUOCINONIDE
     Indication: ARTHRALGIA
     Dosage: UNK, PRN [(UNSPECIFIED (MORE THAN YEAR)]
     Route: 061
  2. FLUOCINONIDE CREAM USP, 0.1 % [Suspect]
     Active Substance: FLUOCINONIDE
     Indication: INFLAMMATION

REACTIONS (1)
  - Drug effective for unapproved indication [Unknown]
